FAERS Safety Report 14543063 (Version 6)
Quarter: 2018Q1

REPORT INFORMATION
  Report Type: Spontaneous
  Country: MX (occurrence: MX)
  Receive Date: 20180216
  Receipt Date: 20180315
  Transmission Date: 20180509
  Serious: Yes (Death)
  Sender: FDA-Public Use
  Company Number: MX-PFIZER INC-2018067147

PATIENT
  Age: 14 Year
  Sex: Female

DRUGS (11)
  1. DEXAMETHASONE. [Suspect]
     Active Substance: DEXAMETHASONE
     Indication: PSYCHOMOTOR HYPERACTIVITY
  2. DEXAMETHASONE. [Suspect]
     Active Substance: DEXAMETHASONE
     Indication: ENCEPHALITIS
  3. FLUCONAZOLE. [Suspect]
     Active Substance: FLUCONAZOLE
     Indication: ENCEPHALITIS
  4. AMPHOTERICIN-B [Suspect]
     Active Substance: AMPHOTERICIN B
     Indication: CONFUSIONAL STATE
     Dosage: 0.7 MG/KG, DAILY
  5. FLUCONAZOLE. [Suspect]
     Active Substance: FLUCONAZOLE
     Indication: CONFUSIONAL STATE
     Dosage: 200 MG/KG, DAILY
  6. FLUCONAZOLE. [Suspect]
     Active Substance: FLUCONAZOLE
     Indication: PSYCHOMOTOR HYPERACTIVITY
  7. AMPHOTERICIN-B [Suspect]
     Active Substance: AMPHOTERICIN B
     Indication: PSYCHOMOTOR HYPERACTIVITY
  8. DEXAMETHASONE. [Suspect]
     Active Substance: DEXAMETHASONE
     Indication: CONFUSIONAL STATE
     Dosage: 1 MG/KG, DAILY
  9. AMPHOTERICIN-B [Suspect]
     Active Substance: AMPHOTERICIN B
     Indication: ENCEPHALITIS
  10. CEFTRIAXONE. [Concomitant]
     Active Substance: CEFTRIAXONE
     Indication: EVIDENCE BASED TREATMENT
     Dosage: 1 G, 2X/DAY
     Route: 042
  11. VANCOMYCIN [Concomitant]
     Active Substance: VANCOMYCIN
     Indication: EVIDENCE BASED TREATMENT
     Dosage: 15 MG/KG, 2X/DAY
     Route: 042

REACTIONS (3)
  - Multiple organ dysfunction syndrome [Fatal]
  - Nervous system disorder [Fatal]
  - Brain oedema [Fatal]
